FAERS Safety Report 4844544-7 (Version None)
Quarter: 2005Q4

REPORT INFORMATION
  Report Type: 
  Country: None (occurrence: None)
  Receive Date: 20051130
  Receipt Date: 20051130
  Transmission Date: 20060501
  Serious: No
  Sender: FDA-Public Use
  Company Number: None

PATIENT
  Age: 12 Year
  Sex: Female
  Weight: 43.9989 kg

DRUGS (4)
  1. EFAVIRENZ [Suspect]
     Indication: ANTIVIRAL PROPHYLAXIS
     Dosage: 600 MG PO QHS
     Route: 048
  2. LOPINAVIR/RITONAVIR [Concomitant]
  3. STAVUDINE [Concomitant]
  4. DIDANOSINE [Concomitant]

REACTIONS (9)
  - ABNORMAL BEHAVIOUR [None]
  - ACTIVITIES OF DAILY LIVING IMPAIRED [None]
  - DELUSION [None]
  - DISTURBANCE IN ATTENTION [None]
  - EMOTIONAL DISORDER [None]
  - HOMICIDAL IDEATION [None]
  - MENTAL STATUS CHANGES [None]
  - SUICIDAL IDEATION [None]
  - THINKING ABNORMAL [None]
